FAERS Safety Report 5821412-5 (Version None)
Quarter: 2008Q3

REPORT INFORMATION
  Report Type: 
  Country: None (occurrence: None)
  Receive Date: 20080724
  Receipt Date: 20080715
  Transmission Date: 20090109
  Serious: Yes (Other)
  Sender: FDA-Public Use
  Company Number: US-KINGPHARMUSA00001-K200800826

PATIENT

DRUGS (1)
  1. INTAL [Suspect]
     Dates: start: 20080501

REACTIONS (2)
  - CARDIAC FAILURE [None]
  - PNEUMONIA [None]
